FAERS Safety Report 4784973-3 (Version None)
Quarter: 2005Q3

REPORT INFORMATION
  Report Type: 
  Country: None (occurrence: None)
  Receive Date: 20050930
  Receipt Date: 20050209
  Transmission Date: 20060218
  Serious: Yes (Other)
  Sender: FDA-Public Use
  Company Number: PHFR2005GB00851

PATIENT
  Age: 48 Year
  Sex: Female

DRUGS (5)
  1. CLOZARIL [Suspect]
     Indication: SCHIZOPHRENIA
     Dosage: 400MG/DAY
     Route: 048
     Dates: start: 20050114, end: 20050207
  2. CLOZARIL [Suspect]
     Route: 048
     Dates: start: 20050824, end: 20050921
  3. DEPAKOTE [Concomitant]
     Indication: SCHIZOPHRENIA
     Dosage: 1000MG/DAY
     Route: 048
     Dates: start: 20041208, end: 20050421
  4. ASPIRIN [Concomitant]
     Indication: ISCHAEMIA
     Dosage: 75MG/DAY
     Route: 048
     Dates: start: 20050129
  5. CLOPIDOGREL [Concomitant]
     Indication: ISCHAEMIA
     Route: 048
     Dates: start: 20050129, end: 20050215

REACTIONS (13)
  - AGRANULOCYTOSIS [None]
  - BODY TEMPERATURE INCREASED [None]
  - CARDIAC DISORDER [None]
  - CHEST PAIN [None]
  - CREPITATIONS [None]
  - DIARRHOEA [None]
  - ELECTROCARDIOGRAM ABNORMAL [None]
  - ELECTROCARDIOGRAM ST SEGMENT DEPRESSION [None]
  - INFECTION [None]
  - NEUTROPENIA [None]
  - RASH [None]
  - RED BLOOD CELL COUNT DECREASED [None]
  - WHEEZING [None]
